FAERS Safety Report 12461714 (Version 10)
Quarter: 2016Q3

REPORT INFORMATION
  Report Type: Report from Study
  Country: MX (occurrence: MX)
  Receive Date: 20160613
  Receipt Date: 20160928
  Transmission Date: 20161109
  Serious: Yes (Life-Threatening, Hospitalization, Other)
  Sender: FDA-Public Use
  Company Number: MX-UCBSA-2016021610

PATIENT
  Age: 11 Year
  Sex: Male
  Weight: 41 kg

DRUGS (16)
  1. CLARITHROMYCIN. [Concomitant]
     Active Substance: CLARITHROMYCIN
     Indication: PNEUMONIA
     Dosage: 300 MG, 2X/DAY (BID)
     Route: 048
     Dates: start: 20160606, end: 20160615
  2. MELOXICAM. [Concomitant]
     Active Substance: MELOXICAM
     Indication: ANALGESIC THERAPY
     Dosage: 15 MG, AS NEEDED (PRN)
     Route: 048
     Dates: start: 20160610
  3. ONDASETRON [Concomitant]
     Active Substance: ONDANSETRON
     Indication: VOMITING
  4. OMEPRAZOLE. [Concomitant]
     Active Substance: OMEPRAZOLE
     Indication: PROPHYLAXIS
     Dosage: 20 MG, ONCE DAILY (QD)
     Route: 048
     Dates: start: 20160517
  5. ACETAMINOPHEN. [Concomitant]
     Active Substance: ACETAMINOPHEN
     Indication: PAIN
  6. ACYCLOVIR. [Concomitant]
     Active Substance: ACYCLOVIR
  7. AMBROXOL [Concomitant]
     Active Substance: AMBROXOL
     Indication: PNEUMONIA
     Dosage: 18 MG, 2X/DAY (BID)
     Route: 048
     Dates: start: 20160606, end: 20160615
  8. MTX [Concomitant]
     Active Substance: METHOTREXATE SODIUM
     Indication: PRODUCT USED FOR UNKNOWN INDICATION
  9. KETOROLAC [Concomitant]
     Active Substance: KETOROLAC\KETOROLAC TROMETHAMINE
     Indication: PAIN
     Dosage: 10 MG, 3X/DAY (TID)
     Route: 048
     Dates: start: 20160608, end: 20160615
  10. MELOXICAM. [Concomitant]
     Active Substance: MELOXICAM
     Indication: JUVENILE IDIOPATHIC ARTHRITIS
     Dosage: 75 MG, AS NEEDED (PRN)
     Route: 048
     Dates: start: 20151110
  11. CERTOLIZUMAB PEGOL JIA [Suspect]
     Active Substance: CERTOLIZUMAB PEGOL
     Indication: JUVENILE IDIOPATHIC ARTHRITIS
     Dosage: 100 MG, NUMBER OF DOSES: 27
     Route: 058
     Dates: start: 20121127, end: 20160426
  12. CEFUROXIME. [Concomitant]
     Active Substance: CEFUROXIME
  13. AMBROXOL [Concomitant]
     Active Substance: AMBROXOL
     Indication: COUGH
  14. VORICONAZOLE. [Concomitant]
     Active Substance: VORICONAZOLE
     Indication: PNEUMONIA FUNGAL
     Dosage: 200 MG, 2X/DAY (BID)
     Route: 048
     Dates: start: 20160616
  15. ACETAMINOPHEN. [Concomitant]
     Active Substance: ACETAMINOPHEN
     Indication: PYREXIA
     Dosage: 500 MG, AS NEEDED (PRN)
     Route: 048
     Dates: start: 20160422, end: 201608
  16. ONDASETRON [Concomitant]
     Active Substance: ONDANSETRON
     Indication: NAUSEA
     Dosage: 8 MG, AS NEEDED (PRN)
     Route: 042
     Dates: start: 20160604, end: 201608

REACTIONS (3)
  - Tuberculosis [Recovering/Resolving]
  - Pneumonia [Recovered/Resolved]
  - Pneumonia fungal [Recovered/Resolved]

NARRATIVE: CASE EVENT DATE: 20160604
